FAERS Safety Report 5614875-1 (Version None)
Quarter: 2008Q1

REPORT INFORMATION
  Report Type: 
  Country: None (occurrence: None)
  Receive Date: 20080131
  Receipt Date: 20071206
  Transmission Date: 20080703
  Serious: Yes (Hospitalization)
  Sender: FDA-Public Use
  Company Number: DE-GUERBET-20070085

PATIENT
  Age: 78 Year
  Sex: Male
  Weight: 96.8 kg

DRUGS (10)
  1. DOTAREM: / GADOTERIC ACID [Suspect]
     Indication: NUCLEAR MAGNETIC RESONANCE IMAGING BRAIN
     Dosage: UNSPECIFIED UNIT, UNSPECIFIED INTERVAL; INTRAVENOUS (NOT OTHERWISE SPECIFIED)
     Route: 042
     Dates: start: 20070918, end: 20070918
  2. ADENOSINE [Concomitant]
  3. CARVEDILOL [Concomitant]
  4. RAMIPRIL [Concomitant]
  5. DIURAPID / FUROSEMIDE [Concomitant]
  6. PENTALONG / PENTAERYTHRITOL TETRANITRATE [Concomitant]
  7. NOVONORM / REPAGLINIDE [Concomitant]
  8. LANTUS / INSULIN GLARGLINE [Concomitant]
  9. SIMVASTATIN [Concomitant]
  10. PHENPROCOUMON / PHENPROCOUMON [Concomitant]

REACTIONS (3)
  - APATHY [None]
  - HAEMODIALYSIS [None]
  - RENAL FAILURE ACUTE [None]
